FAERS Safety Report 23895733 (Version 1)
Quarter: 2024Q2

REPORT INFORMATION
  Report Type: Spontaneous
  Country: US (occurrence: US)
  Receive Date: 20240524
  Receipt Date: 20240524
  Transmission Date: 20240716
  Serious: Yes (Other)
  Sender: FDA-Public Use
  Company Number: US-BAYER-2024A073571

PATIENT

DRUGS (4)
  1. ASPIRIN [Suspect]
     Active Substance: ASPIRIN
  2. BUMEX [Concomitant]
     Active Substance: BUMETANIDE
  3. ELIQUIS [Concomitant]
     Active Substance: APIXABAN
  4. PLAVIX [Concomitant]
     Active Substance: CLOPIDOGREL BISULFATE

REACTIONS (4)
  - Pneumonia [None]
  - Dyspnoea exertional [None]
  - Peripheral swelling [None]
  - Diastolic dysfunction [None]

NARRATIVE: CASE EVENT DATE: 20240514
